FAERS Safety Report 4953874-X (Version None)
Quarter: 2006Q1

REPORT INFORMATION
  Report Type: 
  Country: None (occurrence: None)
  Receive Date: 20060324
  Receipt Date: 20060324
  Transmission Date: 20060701
  Serious: Yes (Other)
  Sender: FDA-Public Use
  Company Number: None

PATIENT
  Age: 50 Year
  Sex: Male
  Weight: 115 kg

DRUGS (7)
  1. PERCOCET [Suspect]
     Indication: PAIN
     Dosage: 5MG/325 MG ONE DOSE
  2. ALPRAZOLAM [Concomitant]
  3. ATENOLOL [Concomitant]
  4. GLYBURIDE [Concomitant]
  5. M.V.I. [Concomitant]
  6. GUAIFENESIN [Concomitant]
  7. TRAZODONE HCL [Concomitant]

REACTIONS (1)
  - RASH [None]
